FAERS Safety Report 12740487 (Version 2)
Quarter: 2016Q3

REPORT INFORMATION
  Report Type: Report from Study
  Country: US (occurrence: US)
  Receive Date: 20160913
  Receipt Date: 20160920
  Transmission Date: 20161109
  Serious: No
  Sender: FDA-Public Use
  Company Number: US-ASTRAZENECA-2016SE96799

PATIENT
  Sex: Male
  Weight: 111.1 kg

DRUGS (1)
  1. BRILINTA [Suspect]
     Active Substance: TICAGRELOR
     Indication: ACUTE CORONARY SYNDROME
     Dosage: EVERY 12 HOURS
     Route: 048

REACTIONS (6)
  - Dyspnoea [Unknown]
  - Chest pain [Unknown]
  - Drug dose omission [Unknown]
  - Fatigue [Unknown]
  - Dizziness [Unknown]
  - Intentional product misuse [Unknown]
